FAERS Safety Report 9508223 (Version 1)
Quarter: 2013Q3

REPORT INFORMATION
  Report Type: Spontaneous
  Country: US (occurrence: US)
  Receive Date: 20130909
  Receipt Date: 20130909
  Transmission Date: 20140515
  Serious: No
  Sender: FDA-Public Use
  Company Number: US-PFIZER INC-2013255379

PATIENT
  Age: 49 Year
  Sex: Male
  Weight: 84.82 kg

DRUGS (1)
  1. MOTRIN IB [Suspect]
     Indication: BACK PAIN
     Dosage: 400 MG A DAY, (2 CAPLETS, ONCE IN THE MORNING)
     Route: 048
     Dates: start: 20130606, end: 20130626

REACTIONS (1)
  - Drug ineffective [Unknown]
